FAERS Safety Report 24781020 (Version 1)
Quarter: 2024Q4

REPORT INFORMATION
  Report Type: Spontaneous
  Country: US (occurrence: US)
  Receive Date: 20241227
  Receipt Date: 20241227
  Transmission Date: 20250115
  Serious: No
  Sender: MERCK
  Company Number: US-009507513-2412USA004285

PATIENT
  Age: 7 Decade
  Sex: Male

DRUGS (3)
  1. NOXAFIL [Interacting]
     Active Substance: POSACONAZOLE
     Indication: Prophylaxis
     Dosage: UNK
  2. PACRITINIB [Interacting]
     Active Substance: PACRITINIB
     Indication: Myelofibrosis
     Dosage: 200 MILLIGRAM, BID
  3. MICAFUNGIN [Concomitant]
     Active Substance: MICAFUNGIN SODIUM
     Indication: Prophylaxis

REACTIONS (2)
  - Diarrhoea [Recovered/Resolved]
  - Drug interaction [Unknown]
